FAERS Safety Report 9441719 (Version 2)
Quarter: 2013Q3

REPORT INFORMATION
  Report Type: Spontaneous
  Country: FR (occurrence: FR)
  Receive Date: 20130806
  Receipt Date: 20130917
  Transmission Date: 20140515
  Serious: Yes (Hospitalization)
  Sender: FDA-Public Use
  Company Number: FR-MERCK-1307FRA015593

PATIENT
  Age: 81 Year
  Sex: Female

DRUGS (5)
  1. EZETROL [Suspect]
     Dosage: 10 MG, QD
     Route: 048
     Dates: start: 201211
  2. DUOPLAVIN [Suspect]
     Indication: ISCHAEMIC CARDIOMYOPATHY
     Dosage: 75 MG, QD
     Route: 048
     Dates: start: 2011, end: 201306
  3. TAHOR [Suspect]
     Indication: HYPERCHOLESTEROLAEMIA
     Dosage: 40 MG, QD
     Route: 048
     Dates: start: 2011, end: 201307
  4. EUPANTOL [Suspect]
     Dosage: 40 MG, QD
     Route: 048
     Dates: start: 2011
  5. BISOPROLOL [Concomitant]

REACTIONS (3)
  - Anaemia [Not Recovered/Not Resolved]
  - Neutropenia [Recovering/Resolving]
  - Thrombocytopenia [Not Recovered/Not Resolved]
